FAERS Safety Report 6023024-X (Version None)
Quarter: 2008Q4

REPORT INFORMATION
  Report Type: 
  Country: None (occurrence: None)
  Receive Date: 20081230
  Receipt Date: 20081224
  Transmission Date: 20090506
  Serious: Yes (Hospitalization)
  Sender: FDA-Public Use
  Company Number: JP-ASTRAZENECA-2007AP08149

PATIENT
  Age: 82 Year
  Sex: Female

DRUGS (2)
  1. IRESSA [Suspect]
     Indication: NON-SMALL CELL LUNG CANCER
     Route: 048
     Dates: start: 20071001
  2. IRESSA [Suspect]
     Route: 048
     Dates: start: 20071001

REACTIONS (2)
  - HAEMATURIA [None]
  - POSTRENAL FAILURE [None]
